FAERS Safety Report 6655314-1 (Version None)
Quarter: 2010Q1

REPORT INFORMATION
  Report Type: 
  Country: None (occurrence: None)
  Receive Date: 20100318
  Receipt Date: 20091209
  Transmission Date: 20100710
  Serious: Yes (Other)
  Sender: FDA-Public Use
  Company Number: 2009282616

PATIENT
  Sex: Female
  Weight: 81.6 kg

DRUGS (1)
  1. XALATAN [Suspect]
     Indication: GLAUCOMA
     Dosage: 1 DROP IN BOTH EYES DAILY, OPHTHALMIC
     Route: 047
     Dates: start: 20070101

REACTIONS (2)
  - DRUG ADMINISTRATION ERROR [None]
  - EYE INFECTION BACTERIAL [None]
